FAERS Safety Report 17631940 (Version 3)
Quarter: 2020Q2

REPORT INFORMATION
  Report Type: Spontaneous
  Country: US (occurrence: US)
  Receive Date: 20200406
  Receipt Date: 20200415
  Transmission Date: 20200713
  Serious: Yes (Other)
  Sender: FDA-Public Use
  Company Number: US-ARRAY-2020-07669

PATIENT

DRUGS (2)
  1. BRAFTOVI [Suspect]
     Active Substance: ENCORAFENIB
     Indication: COLON CANCER
     Dosage: 300 MG, QD
     Route: 048
     Dates: start: 20200310
  2. BRAFTOVI [Suspect]
     Active Substance: ENCORAFENIB
     Dosage: 225 MG, QD
     Route: 048
     Dates: end: 20200405

REACTIONS (7)
  - Unevaluable event [Unknown]
  - Muscle strain [Unknown]
  - Stent placement [Unknown]
  - Anaphylactic reaction [Recovering/Resolving]
  - Product use in unapproved indication [Unknown]
  - Feeding disorder [Unknown]
  - Muscle spasms [Unknown]

NARRATIVE: CASE EVENT DATE: 20200406
